FAERS Safety Report 25191124 (Version 3)
Quarter: 2025Q2

REPORT INFORMATION
  Report Type: Spontaneous
  Country: HU (occurrence: HU)
  Receive Date: 20250411
  Receipt Date: 20250623
  Transmission Date: 20250717
  Serious: Yes (Hospitalization, Other)
  Sender: ELI LILLY AND COMPANY
  Company Number: HU-ELI_LILLY_AND_COMPANY-HU202504000714

PATIENT
  Age: 45 Year
  Sex: Male

DRUGS (1)
  1. MOUNJARO [Suspect]
     Active Substance: TIRZEPATIDE
     Indication: Weight control
     Route: 065

REACTIONS (5)
  - Gastritis [Recovering/Resolving]
  - Cholecystitis acute [Unknown]
  - Abdominal pain upper [Recovering/Resolving]
  - Hepatic enzyme increased [Unknown]
  - Diarrhoea [Recovered/Resolved]
